FAERS Safety Report 17431256 (Version 1)
Quarter: 2020Q1

REPORT INFORMATION
  Report Type: Spontaneous
  Country: US (occurrence: US)
  Receive Date: 20200218
  Receipt Date: 20200218
  Transmission Date: 20200409
  Serious: No
  Sender: FDA-Public Use
  Company Number: US-ASTRAZENECA-2020SE20945

PATIENT
  Age: 776 Month
  Sex: Female

DRUGS (1)
  1. ZOMIG [Suspect]
     Active Substance: ZOLMITRIPTAN
     Indication: MIGRAINE
     Dosage: ONE SPRAY IN ONE NOSTRIL AT ONSET OF MIGRAINE. MAY REPEAT IN TWO HOURS IF NEEDED
     Route: 045

REACTIONS (2)
  - Weight increased [Unknown]
  - Product dose omission [Unknown]

NARRATIVE: CASE EVENT DATE: 201909
